FAERS Safety Report 20746448 (Version 1)
Quarter: 2022Q2

REPORT INFORMATION
  Report Type: Other
  Country: None (occurrence: CA)
  Receive Date: 20220425
  Receipt Date: 20220425
  Transmission Date: 20220720
  Serious: Yes (Other)
  Sender: FDA-Public Use
  Company Number: CA-Jacobus Pharmaceutical Company, Inc.-2128130

PATIENT
  Age: 39 Year
  Sex: Female

DRUGS (1)
  1. DAPSONE [Suspect]
     Active Substance: DAPSONE
     Indication: Antifungal prophylaxis
     Route: 048

REACTIONS (3)
  - Eosinophilia [Unknown]
  - Haemolytic anaemia [Unknown]
  - Haptoglobin decreased [Unknown]
